FAERS Safety Report 4354930-X (Version None)
Quarter: 2004Q2

REPORT INFORMATION
  Report Type: 
  Country: None (occurrence: None)
  Receive Date: 20040510
  Receipt Date: 20040429
  Transmission Date: 20050107
  Serious: Yes (Other)
  Sender: FDA-Public Use
  Company Number: PHFR2004GB01949

PATIENT

DRUGS (1)
  1. RITALIN [Suspect]
     Route: 065

REACTIONS (1)
  - ACCOMMODATION DISORDER [None]
